FAERS Safety Report 5699048-9 (Version None)
Quarter: 2008Q2

REPORT INFORMATION
  Report Type: 
  Country: None (occurrence: None)
  Receive Date: 20080408
  Receipt Date: 20061030
  Transmission Date: 20081010
  Serious: Yes (Death, Other)
  Sender: FDA-Public Use
  Company Number: US-BAYER-US-2006-033696

PATIENT
  Age: 60 Year
  Sex: Male

DRUGS (10)
  1. FLUDARA [Suspect]
     Indication: WALDENSTROM'S MACROGLOBULINAEMIA
  2. RITUXAN [Suspect]
     Indication: WALDENSTROM'S MACROGLOBULINAEMIA
  3. RITUXAN [Suspect]
  4. RITUXAN [Suspect]
  5. CHLORAMBUCIL [Suspect]
     Indication: WALDENSTROM'S MACROGLOBULINAEMIA
  6. DEXAMETHASONE ^BELMAC^ [Suspect]
     Indication: WALDENSTROM'S MACROGLOBULINAEMIA
  7. PREDNISONE [Suspect]
     Indication: WALDENSTROM'S MACROGLOBULINAEMIA
  8. VINCRISTINE [Suspect]
     Indication: WALDENSTROM'S MACROGLOBULINAEMIA
  9. CYTOXAN [Suspect]
     Indication: WALDENSTROM'S MACROGLOBULINAEMIA
  10. THALIDOMIDE [Suspect]
     Indication: WALDENSTROM'S MACROGLOBULINAEMIA

REACTIONS (3)
  - ADENOVIRAL HEPATITIS [None]
  - PANCYTOPENIA [None]
  - PNEUMONIA [None]
